FAERS Safety Report 26176078 (Version 1)
Quarter: 2025Q4

REPORT INFORMATION
  Report Type: Spontaneous
  Country: CN (occurrence: CN)
  Receive Date: 20251218
  Receipt Date: 20251218
  Transmission Date: 20260118
  Serious: Yes (Hospitalization)
  Sender: ELI LILLY AND COMPANY
  Company Number: CN-ELI_LILLY_AND_COMPANY-CN202512022094

PATIENT
  Age: 55 Year
  Sex: Female

DRUGS (3)
  1. GEMCITABINE HYDROCHLORIDE [Suspect]
     Active Substance: GEMCITABINE HYDROCHLORIDE
     Indication: T-cell prolymphocytic leukaemia
     Dosage: 0.4 G, CYCLICAL
     Route: 065
  2. TUCIDINOSTAT [Suspect]
     Active Substance: TUCIDINOSTAT
     Indication: T-cell prolymphocytic leukaemia
     Dosage: 10 MG, QD
     Route: 065
  3. GOLIDOCITINIB [Suspect]
     Active Substance: GOLIDOCITINIB
     Indication: T-cell prolymphocytic leukaemia
     Dosage: 150 MG, QD
     Route: 065

REACTIONS (12)
  - Cytomegalovirus infection [Unknown]
  - Human herpesvirus 6 infection [Unknown]
  - Epstein-Barr virus infection [Unknown]
  - Fungal infection [Unknown]
  - Epistaxis [Unknown]
  - Ecchymosis [Unknown]
  - Petechiae [Unknown]
  - Malignant ascites [Unknown]
  - Malignant neoplasm progression [Unknown]
  - Oedema peripheral [Unknown]
  - Thrombocytopenia [Unknown]
  - Neutropenia [Unknown]
